FAERS Safety Report 4360561-8 (Version None)
Quarter: 2004Q2

REPORT INFORMATION
  Report Type: 
  Country: None (occurrence: None)
  Receive Date: 20040519
  Receipt Date: 20040510
  Transmission Date: 20050107
  Serious: Yes (Death)
  Sender: FDA-Public Use
  Company Number: GB-ROCHE-367183

PATIENT
  Age: 41 Year
  Sex: Male

DRUGS (5)
  1. CLONAZEPAM [Suspect]
     Indication: DRUG USE FOR UNKNOWN INDICATION
     Route: 065
  2. CLOZARIL [Interacting]
     Route: 048
     Dates: start: 20040112
  3. CHLORPROMAZINE [Interacting]
     Indication: DRUG USE FOR UNKNOWN INDICATION
     Route: 065
  4. PROCYCLIDINE HYDROCHLORIDE 2MG TAB [Interacting]
     Indication: DRUG USE FOR UNKNOWN INDICATION
     Route: 065
  5. ZOPICLONE [Suspect]
     Indication: DRUG USE FOR UNKNOWN INDICATION
     Route: 065

REACTIONS (8)
  - ARTERITIS [None]
  - CARDIOPULMONARY FAILURE [None]
  - DIARRHOEA [None]
  - DRUG INTERACTION [None]
  - DRUG LEVEL INCREASED [None]
  - MYOCARDITIS [None]
  - ORTHOSTATIC HYPOTENSION [None]
  - RENAL IMPAIRMENT [None]
